FAERS Safety Report 5280556-X (Version None)
Quarter: 2007Q1

REPORT INFORMATION
  Report Type: 
  Country: None (occurrence: None)
  Receive Date: 20061229
  Receipt Date: 20060817
  Transmission Date: 20070707
  Serious: Yes (Other)
  Sender: FDA-Public Use
  Company Number: 2006UW16438

PATIENT
  Age: 71 Year
  Sex: Male
  Weight: 81.646 kg

DRUGS (7)
  1. CRESTOR [Suspect]
     Dosage: 5 MG PO
     Route: 048
     Dates: start: 20060328
  2. CRESTOR [Suspect]
     Dosage: 10 MG PO
     Route: 048
     Dates: start: 20060501
  3. CRESTOR [Suspect]
     Dosage: 20 MG PO
     Route: 048
     Dates: start: 20060101
  4. ALLOPURINOL [Concomitant]
  5. FLOMAX [Concomitant]
  6. GLUCOSAMINE [Concomitant]
  7. ASPIRIN [Concomitant]

REACTIONS (4)
  - BLOOD CHOLESTEROL INCREASED [None]
  - BLOOD TRIGLYCERIDES INCREASED [None]
  - HIGH DENSITY LIPOPROTEIN INCREASED [None]
  - LOW DENSITY LIPOPROTEIN INCREASED [None]
